FAERS Safety Report 23759700 (Version 1)
Quarter: 2024Q2

REPORT INFORMATION
  Report Type: Spontaneous
  Country: US (occurrence: US)
  Receive Date: 20240419
  Receipt Date: 20240419
  Transmission Date: 20240715
  Serious: Yes (Other)
  Sender: FDA-Public Use
  Company Number: US-BRISTOL-MYERS SQUIBB COMPANY-2024-057820

PATIENT
  Age: 78 Year
  Sex: Male

DRUGS (13)
  1. REVLIMID [Suspect]
     Active Substance: LENALIDOMIDE
     Indication: Plasma cell myeloma
     Route: 048
     Dates: start: 20221227, end: 20240409
  2. CLARITIN [Concomitant]
     Active Substance: LORATADINE
  3. FARXIGA [Concomitant]
     Active Substance: DAPAGLIFLOZIN PROPANEDIOL
  4. CALCIUM [Concomitant]
     Active Substance: CALCIUM
  5. ASPIRIN [Concomitant]
     Active Substance: ASPIRIN
     Dosage: ORANGE 3X36
  6. ATORVASTATIN [Concomitant]
     Active Substance: ATORVASTATIN
  7. PIOGLITAZONE [Concomitant]
     Active Substance: PIOGLITAZONE
  8. METFORMIN HYDROCHLORIDE [Concomitant]
     Active Substance: METFORMIN HYDROCHLORIDE
     Dosage: 24 HR
  9. ACYCLOVIR [Concomitant]
     Active Substance: ACYCLOVIR
  10. DEXAMETHASONE [Concomitant]
     Active Substance: DEXAMETHASONE
  11. CYANOCOBALAMIN [Concomitant]
     Active Substance: CYANOCOBALAMIN
     Dosage: INJ 1 ML VIAL
  12. ZOMETA [Concomitant]
     Active Substance: ZOLEDRONIC ACID
     Dosage: 4MG/100ML INJ
  13. ASPIRIN [Concomitant]
     Active Substance: ASPIRIN

REACTIONS (1)
  - Parkinson^s disease [Unknown]

NARRATIVE: CASE EVENT DATE: 20240409
